FAERS Safety Report 10283696 (Version 2)
Quarter: 2014Q3

REPORT INFORMATION
  Report Type: Report from Study
  Country: JP (occurrence: None)
  Receive Date: 20140702
  Receipt Date: 20140903
  Transmission Date: 20150326
  Serious: Yes (Hospitalization, Disabling, Other)
  Sender: FDA-Public Use
  Company Number: 2010JP000212

PATIENT
  Age: 54 Year
  Sex: Male
  Weight: 57 kg

DRUGS (18)
  1. TAKEPRON (LANSOPRAZOLE) [Concomitant]
     Active Substance: LANSOPRAZOLE
  2. ATELEC (CILNIDIPINE) [Concomitant]
  3. PREDNISOLONE (PREDNISOLONE) PER ORAL NOS [Suspect]
     Active Substance: PREDNISOLONE
     Indication: LUPUS NEPHRITIS
     Route: 048
     Dates: end: 20090625
  4. DALACIN /00166002/ (CLINDAMYCIN HYDROCHLORIDE) [Concomitant]
  5. BENET (RISEDRONATE SODIUM) [Concomitant]
  6. LOSARTAN POTASSIUM W/HYDROCHLOROTHIAZIDE (HYDROCHLOROTHIAZIDE, LOSARTAN POTASSIUM) [Concomitant]
  7. ZOSYN (PIPERACILLIN SODIUM, TAZOBACTAM SODIUM) [Concomitant]
  8. METHYCOBAL (MECOBALAMIN) [Concomitant]
  9. PROGRAF [Suspect]
     Active Substance: TACROLIMUS\TACROLIMUS ANHYDROUS
     Indication: LUPUS NEPHRITIS
     Route: 048
     Dates: start: 20090520, end: 20090612
  10. PREDNISOLONE (PREDNISOLONE) PER ORAL NOS [Suspect]
     Active Substance: PREDNISOLONE
     Indication: INFLAMMATION
     Route: 048
     Dates: end: 20090625
  11. NU-LOTAN (LOSARTAN POTASSIUM) [Concomitant]
  12. LIVALO (ITAVASTATIN CALCIUM) [Concomitant]
  13. PROCYLIN (BERAPROST SODIUM) [Concomitant]
  14. CO-DIOVAN (HYDROCHLOROTHIAZIDE, VALSARTAN) [Concomitant]
  15. VOLTAREN [Suspect]
     Active Substance: DICLOFENAC SODIUM
     Indication: PRODUCT USED FOR UNKNOWN INDICATION
     Route: 054
     Dates: start: 20090702, end: 20090709
  16. ROPION [Suspect]
     Active Substance: FLURBIPROFEN AXETIL
     Indication: PRODUCT USED FOR UNKNOWN INDICATION
     Route: 042
     Dates: start: 20090703, end: 20090709
  17. LIPOVAS (SIMVASTATIN) [Concomitant]
  18. SELECTOL (CELIPROLOL HYDROCHLORIDE) [Concomitant]

REACTIONS (8)
  - Pyrexia [None]
  - Cellulitis [None]
  - Skin ulcer [None]
  - Inflammation [None]
  - Hyperlipidaemia [None]
  - Liver disorder [None]
  - Hypertension [None]
  - Arthralgia [None]

NARRATIVE: CASE EVENT DATE: 20090610
